FAERS Safety Report 25348522 (Version 2)
Quarter: 2025Q2

REPORT INFORMATION
  Report Type: Other
  Country: GR (occurrence: GR)
  Receive Date: 20250522
  Receipt Date: 20250523
  Transmission Date: 20250716
  Serious: Yes (Life-Threatening, Hospitalization)
  Sender: EMD SERONO INC
  Company Number: GR-Merck Healthcare KGaA-2025023577

PATIENT
  Age: 72 Year
  Sex: Female

DRUGS (1)
  1. METFORMIN [Suspect]
     Active Substance: METFORMIN HYDROCHLORIDE
     Indication: Type 2 diabetes mellitus

REACTIONS (6)
  - Acute kidney injury [Recovered/Resolved]
  - Hypoglycaemia [Unknown]
  - Urinary tract infection [Recovered/Resolved]
  - Diarrhoea [Unknown]
  - Lactic acidosis [Recovered/Resolved]
  - Contraindicated product administered [Unknown]
